FAERS Safety Report 7895878-3 (Version None)
Quarter: 2011Q4

REPORT INFORMATION
  Report Type: 
  Country: None (occurrence: None)
  Receive Date: 20111106
  Receipt Date: 20110901
  Transmission Date: 20120403
  Serious: No
  Sender: FDA-Public Use
  Company Number: US-AMGEN-USASP2011044988

PATIENT
  Age: 49 Year
  Sex: Female

DRUGS (2)
  1. ENBREL [Suspect]
     Indication: RHEUMATOID ARTHRITIS
     Dosage: 50 MG, QWK
     Dates: start: 20080415
  2. METHOTREXATE [Concomitant]
     Dosage: 1 MG, UNK

REACTIONS (4)
  - MALAISE [None]
  - DRUG INEFFECTIVE [None]
  - DECREASED APPETITE [None]
  - RHEUMATOID ARTHRITIS [None]
